FAERS Safety Report 25717690 (Version 2)
Quarter: 2025Q3

REPORT INFORMATION
  Report Type: Spontaneous
  Country: US (occurrence: US)
  Receive Date: 20250822
  Receipt Date: 20250918
  Transmission Date: 20251020
  Serious: Yes (Other)
  Sender: GLENMARK
  Company Number: US-MLMSERVICE-20250804-PI601031-00104-1

PATIENT
  Age: 18 Year
  Sex: Female

DRUGS (11)
  1. CLINDAMYCIN HYDROCHLORIDE [Suspect]
     Active Substance: CLINDAMYCIN HYDROCHLORIDE
     Indication: External ear cellulitis
     Route: 048
  2. CLINDAMYCIN HYDROCHLORIDE [Suspect]
     Active Substance: CLINDAMYCIN HYDROCHLORIDE
     Indication: Rash morbilliform
  3. CLINDAMYCIN HYDROCHLORIDE [Suspect]
     Active Substance: CLINDAMYCIN HYDROCHLORIDE
     Indication: Rash
  4. CLINDAMYCIN PHOSPHATE [Suspect]
     Active Substance: CLINDAMYCIN PHOSPHATE
     Indication: Rash morbilliform
     Route: 061
  5. CLINDAMYCIN PHOSPHATE [Suspect]
     Active Substance: CLINDAMYCIN PHOSPHATE
     Indication: Rash
  6. CEFTRIAXONE [Concomitant]
     Active Substance: CEFTRIAXONE
     Indication: External ear cellulitis
     Route: 065
  7. NAPROXEN [Concomitant]
     Active Substance: NAPROXEN
     Indication: External ear cellulitis
     Route: 065
  8. DICLOXACILLIN [Concomitant]
     Active Substance: DICLOXACILLIN
     Indication: Rash morbilliform
     Route: 065
  9. DICLOXACILLIN [Concomitant]
     Active Substance: DICLOXACILLIN
     Indication: Rash
  10. Microdacyn [Concomitant]
     Indication: Rash morbilliform
     Route: 065
  11. Microdacyn [Concomitant]
     Indication: Rash

REACTIONS (1)
  - Acute generalised exanthematous pustulosis [Recovered/Resolved]
